FAERS Safety Report 7337246-9 (Version None)
Quarter: 2011Q1

REPORT INFORMATION
  Report Type: 
  Country: None (occurrence: None)
  Receive Date: 20110308
  Receipt Date: 20110301
  Transmission Date: 20110831
  Serious: Yes (Life-Threatening)
  Sender: FDA-Public Use
  Company Number: DE-ELI_LILLY_AND_COMPANY-DE201103000546

PATIENT
  Age: 69 Year
  Sex: Male

DRUGS (10)
  1. AMLODIPINE [Concomitant]
  2. RAMIPRIL [Concomitant]
  3. IBUPROFEN [Concomitant]
  4. HUMINSULIN 30% REGULAR, 70% NPH [Suspect]
     Indication: DIABETES MELLITUS
     Route: 058
  5. CARVEDILOL [Concomitant]
  6. TORSEMIDE [Concomitant]
  7. OMEPRAZOLE [Concomitant]
  8. METFORMIN [Concomitant]
  9. NEBIVOLOL [Concomitant]
  10. GLIMEGAMMA [Concomitant]

REACTIONS (2)
  - BLOOD GLUCOSE FLUCTUATION [None]
  - HYPOGLYCAEMIA [None]
